FAERS Safety Report 4831652-X (Version None)
Quarter: 2005Q4

REPORT INFORMATION
  Report Type: 
  Country: None (occurrence: None)
  Receive Date: 20051116
  Receipt Date: 20051103
  Transmission Date: 20060501
  Serious: Yes (Other)
  Sender: FDA-Public Use
  Company Number: 2005092308

PATIENT
  Age: 58 Year
  Sex: Female
  Weight: 88.4514 kg

DRUGS (10)
  1. CELEBREX [Suspect]
     Indication: ARTHRITIS
     Dosage: UNKNOWN (200 MG, ONCE TO TWICE DAILY AS NEEDED), ORAL
     Route: 048
  2. CELEBREX [Suspect]
     Indication: INTERVERTEBRAL DISC DEGENERATION
     Dosage: UNKNOWN (200 MG, ONCE TO TWICE DAILY AS NEEDED), ORAL
     Route: 048
  3. CELEBREX [Suspect]
     Indication: PAIN
     Dosage: UNKNOWN (200 MG, ONCE TO TWICE DAILY AS NEEDED), ORAL
     Route: 048
  4. NAPROXEN [Suspect]
     Indication: ARTHRITIS
     Dosage: UNKNOWN, ORAL
     Route: 048
     Dates: start: 20050607
  5. NAPROXEN [Suspect]
     Indication: INTERVERTEBRAL DISC DEGENERATION
     Dosage: UNKNOWN, ORAL
     Route: 048
     Dates: start: 20050607
  6. NAPROXEN [Suspect]
     Indication: PAIN
     Dosage: UNKNOWN, ORAL
     Route: 048
     Dates: start: 20050607
  7. IBUPROFEN [Suspect]
     Indication: ILL-DEFINED DISORDER
     Dosage: UNKNOWN (600 MG, UNKNOWN), UNKNOWN
     Route: 065
  8. ALL OTHER THERAPEUTIC PRODUCTS (ALL OTHER THERAPEUTIC PRODUCTS) [Suspect]
     Indication: BACK DISORDER
     Dosage: UNKNOWN (UNK,UNKNOWN), EPIDURAL
     Route: 008
     Dates: start: 20051025, end: 20051025
  9. SYNTHROID [Concomitant]
  10. ALLEGRA [Concomitant]

REACTIONS (17)
  - AGITATION [None]
  - ANXIETY [None]
  - ARTHRITIS [None]
  - BACK DISORDER [None]
  - CONDITION AGGRAVATED [None]
  - DRUG INEFFECTIVE [None]
  - HYPERTENSION [None]
  - INSOMNIA [None]
  - MASS [None]
  - MOVEMENT DISORDER [None]
  - NASOPHARYNGITIS [None]
  - PAIN [None]
  - PROCEDURAL PAIN [None]
  - SINUSITIS [None]
  - STOMACH DISCOMFORT [None]
  - STRESS [None]
  - SWELLING [None]
